FAERS Safety Report 12762032 (Version 3)
Quarter: 2018Q1

REPORT INFORMATION
  Report Type: Spontaneous
  Country: US (occurrence: US)
  Receive Date: 20160920
  Receipt Date: 20180316
  Transmission Date: 20180508
  Serious: Yes (Hospitalization, Disabling)
  Sender: FDA-Public Use
  Company Number: US-ENDO PHARMACEUTICALS INC.-2016-005768

PATIENT
  Age: 68 Year
  Sex: Male
  Weight: 109.87 kg

DRUGS (3)
  1. TESTIM [Suspect]
     Active Substance: TESTOSTERONE
     Dosage: UNK UNKNOWN, UNKNOWN
     Route: 062
     Dates: start: 201301, end: 201501
  2. LISINOPRIL TABLETS [Concomitant]
     Active Substance: LISINOPRIL
     Indication: HYPERTENSION
     Dosage: UNK UNKNOWN, UNKNOWN
     Route: 065
     Dates: start: 2010
  3. TESTIM [Suspect]
     Active Substance: TESTOSTERONE
     Indication: ANDROGEN REPLACEMENT THERAPY
     Dosage: ONE AND ONE HALF TUBES IN THE MORNING
     Route: 062
     Dates: start: 20090109

REACTIONS (11)
  - Tumour excision [Unknown]
  - Stress [Unknown]
  - Adverse drug reaction [Unknown]
  - Vertigo [Unknown]
  - Cerebellar infarction [Not Recovered/Not Resolved]
  - Hypoaesthesia [Unknown]
  - Cerebral arteriosclerosis [Unknown]
  - Neck injury [Unknown]
  - Hypertension [Unknown]
  - Neuropathy peripheral [Unknown]
  - Abdominal discomfort [Unknown]

NARRATIVE: CASE EVENT DATE: 2013
